FAERS Safety Report 5175271-7 (Version None)
Quarter: 2006Q4

REPORT INFORMATION
  Report Type: 
  Country: None (occurrence: None)
  Receive Date: 20061211
  Receipt Date: 20061211
  Transmission Date: 20070319
  Serious: Yes (Other)
  Sender: FDA-Public Use
  Company Number: None

PATIENT
  Age: 16 Year
  Sex: Female

DRUGS (1)
  1. QUASENSE [Suspect]
     Indication: HAEMORRHAGE
     Dosage: TAKE ONE TABLET DAILY

REACTIONS (1)
  - NAUSEA [None]
